FAERS Safety Report 7609006-2 (Version None)
Quarter: 2011Q3

REPORT INFORMATION
  Report Type: 
  Country: None (occurrence: None)
  Receive Date: 20110713
  Receipt Date: 20110713
  Transmission Date: 20111222
  Serious: Yes (Other)
  Sender: FDA-Public Use
  Company Number: None

PATIENT
  Age: 27 Year
  Sex: Female
  Weight: 63.5036 kg

DRUGS (1)
  1. DEPO-PROVERA [Suspect]
     Indication: CONTRACEPTION
     Dosage: 1 DOSE EVERY 3 MOTHS IM
     Route: 030
     Dates: start: 20110527

REACTIONS (11)
  - LISTLESS [None]
  - HEADACHE [None]
  - LIBIDO DECREASED [None]
  - NEURALGIA [None]
  - INSOMNIA [None]
  - MOOD SWINGS [None]
  - DEPRESSION [None]
  - ANXIETY [None]
  - ALOPECIA [None]
  - MENORRHAGIA [None]
  - ARTHRALGIA [None]
